FAERS Safety Report 10153879 (Version 1)
Quarter: 2014Q2

REPORT INFORMATION
  Report Type: Spontaneous
  Country: IE (occurrence: IE)
  Receive Date: 20140506
  Receipt Date: 20140506
  Transmission Date: 20141212
  Serious: Yes (Hospitalization)
  Sender: FDA-Public Use
  Company Number: IE-AMGEN INC.-IRLSP2014031547

PATIENT
  Age: 87 Year
  Sex: Female

DRUGS (7)
  1. ARANESP [Suspect]
     Indication: RENAL FAILURE CHRONIC
     Dosage: 40 MUG, Q2WK
     Route: 058
     Dates: start: 20110527
  2. GTN [Concomitant]
  3. AMLODIPINE [Concomitant]
  4. CLOPIDOGREL [Concomitant]
  5. SODIUM BICARBONATE [Concomitant]
  6. PANTOPRAZOLE [Concomitant]
  7. VALSARTAN [Concomitant]

REACTIONS (2)
  - Circulatory collapse [Unknown]
  - Bladder mass [Unknown]
